FAERS Safety Report 5778133-7 (Version None)
Quarter: 2008Q2

REPORT INFORMATION
  Report Type: 
  Country: None (occurrence: None)
  Receive Date: 20080619
  Receipt Date: 20080613
  Transmission Date: 20081010
  Serious: Yes (Hospitalization)
  Sender: FDA-Public Use
  Company Number: US-JNJFOC-20080603640

PATIENT
  Sex: Female
  Weight: 88.45 kg

DRUGS (1)
  1. TOPAMAX [Suspect]
     Indication: MIGRAINE PROPHYLAXIS
     Route: 048

REACTIONS (4)
  - DYSARTHRIA [None]
  - FEELING DRUNK [None]
  - MUSCLE TWITCHING [None]
  - PARAESTHESIA [None]
